FAERS Safety Report 6699531-3 (Version None)
Quarter: 2010Q2

REPORT INFORMATION
  Report Type: 
  Country: None (occurrence: None)
  Receive Date: 20100427
  Receipt Date: 20100427
  Transmission Date: 20101027
  Serious: Yes (Other)
  Sender: FDA-Public Use
  Company Number: None

PATIENT
  Sex: Female

DRUGS (2)
  1. SUBOXONE [Suspect]
     Indication: PAIN
     Dosage: 32MG TAPERED DOWN TO 2MG  DAILY PO
     Route: 048
     Dates: start: 20080701, end: 20081130
  2. SUBUTEX [Suspect]
     Dosage: 4MG ONCE A DAY PO
     Route: 048
     Dates: start: 20091201, end: 20091207

REACTIONS (1)
  - HYPOAESTHESIA [None]
